FAERS Safety Report 8348702-9 (Version None)
Quarter: 2012Q2

REPORT INFORMATION
  Report Type: 
  Country: None (occurrence: None)
  Receive Date: 20120508
  Receipt Date: 20120427
  Transmission Date: 20120825
  Serious: Yes (Other)
  Sender: FDA-Public Use
  Company Number: 2012P1018463

PATIENT
  Age: 74 Year
  Sex: Female
  Weight: 60.3284 kg

DRUGS (13)
  1. DOXYCYCLINE HYCLATE [Suspect]
     Indication: ENDOCARDITIS
     Dosage: 100 MG;BID; 100 MG;BID;
     Dates: start: 20120406, end: 20120408
  2. DOXYCYCLINE HYCLATE [Suspect]
     Indication: BARTONELLOSIS
     Dosage: 100 MG;BID; 100 MG;BID;
     Dates: start: 20120406, end: 20120408
  3. DOXYCYCLINE HYCLATE [Suspect]
     Indication: ENDOCARDITIS
     Dosage: 100 MG;BID; 100 MG;BID;
     Dates: start: 20120419
  4. DOXYCYCLINE HYCLATE [Suspect]
     Indication: BARTONELLOSIS
     Dosage: 100 MG;BID; 100 MG;BID;
     Dates: start: 20120419
  5. IRON [Concomitant]
  6. CEFTRIAXONE SODIUM [Concomitant]
  7. VANCOMYCIN [Suspect]
     Indication: BARTONELLOSIS
     Dosage: ;IV
     Route: 042
     Dates: start: 20120413, end: 20120416
  8. VANCOMYCIN [Suspect]
     Indication: ENDOCARDITIS
     Dosage: ;IV
     Route: 042
     Dates: start: 20120413, end: 20120416
  9. LIPITOR [Concomitant]
  10. GENTAMICIN [Suspect]
     Indication: ENDOCARDITIS
     Dosage: ;IV
     Route: 042
     Dates: start: 20120401, end: 20120413
  11. GENTAMICIN [Suspect]
     Indication: BARTONELLOSIS
     Dosage: ;IV
     Route: 042
     Dates: start: 20120401, end: 20120413
  12. ASPIRIN [Concomitant]
  13. COREG [Concomitant]

REACTIONS (3)
  - RENAL IMPAIRMENT [None]
  - NAUSEA [None]
  - ABDOMINAL DISCOMFORT [None]
